FAERS Safety Report 8198979-8 (Version None)
Quarter: 2012Q1

REPORT INFORMATION
  Report Type: 
  Country: None (occurrence: None)
  Receive Date: 20120309
  Receipt Date: 20120303
  Transmission Date: 20120608
  Serious: Yes (Hospitalization)
  Sender: FDA-Public Use
  Company Number: US-BAYER-2011-040629

PATIENT
  Age: 31 Year
  Sex: Female
  Weight: 115.65 kg

DRUGS (14)
  1. YAZ [Suspect]
     Indication: MENSTRUATION IRREGULAR
     Dosage: UNK
     Dates: start: 20081117, end: 20090511
  2. IMITREX [Concomitant]
     Indication: MIGRAINE
     Dosage: UNK UNK, PRN
     Route: 048
     Dates: start: 20081101
  3. ALPRAZOLAM [Concomitant]
     Indication: ANXIETY
     Dosage: 0.5 MG, QD
     Route: 048
     Dates: start: 20090101
  4. NEURONTIN [Concomitant]
  5. YAZ [Suspect]
     Indication: POLYCYSTIC OVARIES
  6. ATENOLOL [Concomitant]
     Indication: HYPERTENSION
     Dosage: 50 MG, QD
     Route: 048
     Dates: start: 20081101, end: 20091001
  7. LEXAPRO [Concomitant]
     Indication: MENTAL DISORDER
     Dosage: 20 MG, QD
     Route: 048
     Dates: start: 20080901, end: 20090901
  8. SPIRONOLACTONE [Concomitant]
     Indication: HIRSUTISM
     Dosage: 200 MG, QD
     Route: 048
     Dates: start: 20081101, end: 20090601
  9. METFORMIN [Concomitant]
     Indication: DIABETES MELLITUS
     Dosage: 500 MG, TID
     Route: 048
     Dates: start: 20020101, end: 20090101
  10. HALDOL [Concomitant]
     Indication: MENTAL DISORDER
     Dosage: UNK
     Route: 048
     Dates: start: 20060101, end: 20110101
  11. BENTYL [Concomitant]
     Dosage: 20 MG, BID
     Route: 048
  12. YAZ [Suspect]
     Indication: HIRSUTISM
  13. ABILIFY [Concomitant]
     Indication: ANXIETY
     Dosage: 20 MG, QD
     Route: 048
     Dates: start: 20040101, end: 20090101
  14. HYDROXYZINE PAMOATE [Concomitant]
     Indication: ANXIETY
     Dosage: 100 MG, QD
     Route: 048
     Dates: start: 20080101, end: 20090101

REACTIONS (6)
  - PULMONARY EMBOLISM [None]
  - MENORRHAGIA [None]
  - DYSPNOEA [None]
  - CHEST PAIN [None]
  - PAIN [None]
  - DYSMENORRHOEA [None]
